FAERS Safety Report 6803240-7 (Version None)
Quarter: 2010Q2

REPORT INFORMATION
  Report Type: 
  Country: None (occurrence: None)
  Receive Date: 20100628
  Receipt Date: 20100621
  Transmission Date: 20101027
  Serious: Yes (Hospitalization)
  Sender: FDA-Public Use
  Company Number: D0067978A

PATIENT
  Sex: Male
  Weight: 87 kg

DRUGS (1)
  1. LAMICTAL [Suspect]
     Dosage: 700MG SINGLE DOSE
     Route: 048
     Dates: start: 20100611, end: 20100611

REACTIONS (1)
  - ACCIDENTAL OVERDOSE [None]
